FAERS Safety Report 8494803-4 (Version None)
Quarter: 2012Q3

REPORT INFORMATION
  Report Type: 
  Country: None (occurrence: None)
  Receive Date: 20120709
  Receipt Date: 20120702
  Transmission Date: 20120928
  Serious: Yes (Hospitalization, Disabling, Other)
  Sender: FDA-Public Use
  Company Number: US-MERCK SHARP & DOHME-1201USA00333

PATIENT

DRUGS (7)
  1. FOSAMAX [Suspect]
     Indication: OSTEOPOROSIS
  2. VITAMIN D (UNSPECIFIED) [Concomitant]
     Dosage: 1000 IU, QD
  3. FOSAMAX PLUS D [Suspect]
     Indication: BONE LOSS
     Dosage: 70/2800
     Route: 048
     Dates: start: 20060430, end: 20110805
  4. CALCIUM (UNSPECIFIED) [Concomitant]
     Dosage: 600 IU, QD
  5. FOSAMAX [Suspect]
     Indication: OSTEOPENIA
     Dosage: 70 MG, UNK
     Route: 048
     Dates: start: 20010122, end: 20090511
  6. MULTI-VITAMINS [Concomitant]
     Dosage: UNK UNK, QD
  7. FOSAMAX [Suspect]
     Indication: BONE LOSS
     Dosage: 70 MG, UNK
     Route: 048
     Dates: start: 20091109, end: 20110215

REACTIONS (5)
  - STRESS FRACTURE [None]
  - FEMUR FRACTURE [None]
  - ANXIETY [None]
  - APPENDICECTOMY [None]
  - TIBIA FRACTURE [None]
